FAERS Safety Report 23640644 (Version 15)
Quarter: 2025Q1

REPORT INFORMATION
  Report Type: Report from Study
  Country: DE (occurrence: DE)
  Receive Date: 20240318
  Receipt Date: 20250220
  Transmission Date: 20250408
  Serious: Yes (Other)
  Sender: ROCHE
  Company Number: DE-ROCHE-3525943

PATIENT
  Age: 67 Year
  Sex: Male

DRUGS (8)
  1. OCREVUS [Suspect]
     Active Substance: OCRELIZUMAB
     Indication: Secondary progressive multiple sclerosis
     Dosage: THE OCRELIZUMAB MAINTENANCE DOSE WAS ADMINISTERED ON 29/MAY/2020 AS PLANNED.
     Route: 040
     Dates: start: 20190401, end: 20190401
  2. OCREVUS [Suspect]
     Active Substance: OCRELIZUMAB
     Route: 040
     Dates: start: 20190415, end: 20190415
  3. OCREVUS [Suspect]
     Active Substance: OCRELIZUMAB
     Route: 040
     Dates: start: 20191014
  4. OCREVUS [Suspect]
     Active Substance: OCRELIZUMAB
     Route: 040
     Dates: start: 20200529
  5. OCREVUS [Suspect]
     Active Substance: OCRELIZUMAB
     Route: 040
     Dates: start: 20201110
  6. OCREVUS [Suspect]
     Active Substance: OCRELIZUMAB
     Dosage: (6TH MAINTENANCE DOSE).
     Route: 040
     Dates: start: 20210714, end: 20220714
  7. CORTISONE ACETATE [Suspect]
     Active Substance: CORTISONE ACETATE
     Indication: Premedication
     Route: 065
  8. DALFAMPRIDINE [Concomitant]
     Active Substance: DALFAMPRIDINE
     Dates: start: 202104

REACTIONS (40)
  - Dementia [Not Recovered/Not Resolved]
  - Multiple sclerosis [Not Recovered/Not Resolved]
  - Loss of consciousness [Recovered/Resolved]
  - Fatigue [Recovered/Resolved]
  - Influenza [Recovered/Resolved]
  - Excessive cerumen production [Recovered/Resolved]
  - Asthenia [Not Recovered/Not Resolved]
  - Lacrimation increased [Not Recovered/Not Resolved]
  - Aggression [Recovered/Resolved]
  - Dizziness [Recovering/Resolving]
  - Bone contusion [Recovered/Resolved]
  - Chills [Recovered/Resolved]
  - Incorrect product administration duration [Unknown]
  - Skin discolouration [Recovered/Resolved]
  - Nasopharyngitis [Recovered/Resolved]
  - Eye pruritus [Not Recovered/Not Resolved]
  - Tremor [Unknown]
  - Lymphocyte count decreased [Not Recovered/Not Resolved]
  - Contusion [Recovered/Resolved]
  - Joint swelling [Unknown]
  - Skin reaction [Not Recovered/Not Resolved]
  - Periorbital haematoma [Unknown]
  - Skin abrasion [Unknown]
  - Pancreatic disorder [Recovered/Resolved]
  - Musculoskeletal stiffness [Recovered/Resolved]
  - Balance disorder [Recovering/Resolving]
  - Influenza like illness [Recovered/Resolved]
  - Pruritus [Unknown]
  - Off label use [Unknown]
  - C-reactive protein abnormal [Not Recovered/Not Resolved]
  - Contusion [Recovered/Resolved]
  - Cognitive disorder [Not Recovered/Not Resolved]
  - Skin laceration [Recovered/Resolved]
  - Fall [Unknown]
  - Bradykinesia [Recovered/Resolved]
  - Feeling cold [Recovered/Resolved]
  - B-lymphocyte count decreased [Not Recovered/Not Resolved]
  - Flushing [Recovered/Resolved]
  - Eye haematoma [Recovered/Resolved]
  - Heart rate decreased [Not Recovered/Not Resolved]

NARRATIVE: CASE EVENT DATE: 20190401
